FAERS Safety Report 17442847 (Version 4)
Quarter: 2020Q2

REPORT INFORMATION
  Report Type: Report from Study
  Country: None (occurrence: TW)
  Receive Date: 20200221
  Receipt Date: 20200519
  Transmission Date: 20200713
  Serious: Yes (Hospitalization)
  Sender: FDA-Public Use
  Company Number: TW-ABBVIE-20K-153-3286647-00

PATIENT
  Age: 69 Year
  Sex: Male
  Weight: 59 kg

DRUGS (2)
  1. PRIMPERAN [Concomitant]
     Active Substance: METOCLOPRAMIDE HYDROCHLORIDE
     Indication: PROPHYLAXIS OF NAUSEA AND VOMITING
     Route: 048
     Dates: start: 20200204, end: 20200303
  2. IMBRUVICA [Suspect]
     Active Substance: IBRUTINIB
     Indication: MANTLE CELL LYMPHOMA REFRACTORY
     Dosage: 140 MG, 4 CAPSULES
     Route: 048
     Dates: start: 20190129

REACTIONS (9)
  - Fracture [Recovered/Resolved]
  - Penile ulceration [Recovered/Resolved]
  - Angular cheilitis [Recovered/Resolved]
  - Epistaxis [Recovered/Resolved]
  - Conjunctivitis [Not Recovered/Not Resolved]
  - Lethargy [Not Recovered/Not Resolved]
  - Onychomycosis [Not Recovered/Not Resolved]
  - Diarrhoea [Recovered/Resolved]
  - Somnolence [Unknown]

NARRATIVE: CASE EVENT DATE: 20190129
